FAERS Safety Report 8308495-8 (Version None)
Quarter: 2012Q2

REPORT INFORMATION
  Report Type: 
  Country: None (occurrence: None)
  Receive Date: 20120424
  Receipt Date: 20090901
  Transmission Date: 20120825
  Serious: Yes (Hospitalization)
  Sender: FDA-Public Use
  Company Number: US-TEVA-2009009671

PATIENT
  Sex: Female
  Weight: 81.72 kg

DRUGS (17)
  1. ATENOLOL [Concomitant]
     Dosage: 25 MILLIGRAM;
     Dates: start: 20090428
  2. ALBUTEROL [Concomitant]
     Dosage: 90 MICROGRAM;
     Dates: start: 20070101
  3. VERAMYST [Concomitant]
     Route: 045
     Dates: start: 19760101
  4. HYOSYAMINE [Concomitant]
     Dosage: .75 MILLIGRAM;
     Dates: start: 20080101
  5. CYMBALTA [Concomitant]
     Dosage: 60 MILLIGRAM;
     Dates: start: 20060101
  6. NEXIUM [Concomitant]
     Dosage: 40 MILLIGRAM;
     Dates: start: 20090619
  7. KLONOPIN [Concomitant]
     Dosage: 4 MILLIGRAM;
     Dates: start: 20010101
  8. DIVALPROEX SODIUM [Concomitant]
     Dosage: 1000 MILLIGRAM;
     Dates: start: 20090101
  9. ADVAIR DISKUS 100/50 [Concomitant]
     Dates: start: 20070101
  10. LIPITOR [Concomitant]
     Dosage: 60 MILLIGRAM;
     Dates: start: 20090706
  11. GEODON [Concomitant]
     Dosage: 60 MILLIGRAM;
     Dates: start: 20090101
  12. TRAZODONE HCL [Concomitant]
     Dosage: 300 MILLIGRAM;
     Dates: start: 19790101
  13. LEVOXYL [Concomitant]
     Dosage: .175 MILLIGRAM;
     Dates: start: 19990101
  14. ACIDOPHYLIS [Concomitant]
     Dates: start: 20060101
  15. PROVIGIL [Suspect]
     Indication: SOMNOLENCE
     Dosage: 200 MILLIGRAM;
     Route: 048
     Dates: start: 20070101
  16. PROVIGIL [Suspect]
     Dosage: 400 MILLIGRAM;
     Route: 048
     Dates: end: 20090724
  17. HYDROXYZINE [Concomitant]
     Dosage: 100 MILLIGRAM;
     Dates: start: 20090101

REACTIONS (3)
  - DRUG INEFFECTIVE FOR UNAPPROVED INDICATION [None]
  - HALLUCINATION [None]
  - SUICIDAL IDEATION [None]
